FAERS Safety Report 12275981 (Version 3)
Quarter: 2016Q2

REPORT INFORMATION
  Report Type: Report from Study
  Country: US (occurrence: US)
  Receive Date: 20160418
  Receipt Date: 20160510
  Transmission Date: 20160815
  Serious: Yes (Hospitalization)
  Sender: FDA-Public Use
  Company Number: US-GILEAD-2016-0207391

PATIENT
  Age: 63 Year
  Sex: Female
  Weight: 104 kg

DRUGS (48)
  1. AMBRISENTAN [Suspect]
     Active Substance: AMBRISENTAN
     Indication: COR PULMONALE
     Dosage: 5 MG, QD
     Route: 048
     Dates: start: 20160321
  2. VENTOLIN [Concomitant]
     Active Substance: ALBUTEROL SULFATE
  3. OCEAN NASAL [Concomitant]
  4. FLUTICASONE [Concomitant]
     Active Substance: FLUTICASONE\FLUTICASONE PROPIONATE
  5. PANTOPRAZOLE [Concomitant]
     Active Substance: PANTOPRAZOLE SODIUM
  6. FUROSEMIDE. [Concomitant]
     Active Substance: FUROSEMIDE
  7. TREPROSTINIL [Concomitant]
     Active Substance: TREPROSTINIL
  8. ONDANSETRON [Concomitant]
     Active Substance: ONDANSETRON
  9. ADVAIR HFA [Concomitant]
     Active Substance: FLUTICASONE PROPIONATE\SALMETEROL XINAFOATE
  10. COLACE [Concomitant]
     Active Substance: DOCUSATE SODIUM
  11. SILDENAFIL. [Concomitant]
     Active Substance: SILDENAFIL
     Indication: PULMONARY HYPERTENSION
  12. FERROUS SULFATE. [Concomitant]
     Active Substance: FERROUS SULFATE
  13. HEPARIN [Concomitant]
     Active Substance: HEPARIN SODIUM
  14. SODIUM CHLORIDE. [Concomitant]
     Active Substance: SODIUM CHLORIDE
  15. ALBUTEROL SULFATE AND IPRATROPIUM BROMIDE [Concomitant]
  16. METOLAZONE. [Concomitant]
     Active Substance: METOLAZONE
  17. SIMVASTATIN. [Concomitant]
     Active Substance: SIMVASTATIN
  18. INSULINE GLARGINE [Concomitant]
     Active Substance: INSULIN GLARGINE
  19. NORCO [Concomitant]
     Active Substance: ACETAMINOPHEN\HYDROCODONE BITARTRATE
  20. INSULIN LISPRO [Concomitant]
     Active Substance: INSULIN LISPRO
  21. MAGENSIUM VITAFIT [Concomitant]
  22. OXYGEN. [Concomitant]
     Active Substance: OXYGEN
  23. MILRINONE [Concomitant]
     Active Substance: MILRINONE
  24. SEROQUEL [Concomitant]
     Active Substance: QUETIAPINE FUMARATE
  25. GABAPENTIN. [Concomitant]
     Active Substance: GABAPENTIN
  26. GLUCAGON. [Concomitant]
     Active Substance: GLUCAGON
  27. MAGNESIUM SULFATE. [Concomitant]
     Active Substance: MAGNESIUM SULFATE
  28. ALPRAZOLAM. [Concomitant]
     Active Substance: ALPRAZOLAM
  29. REMERON [Concomitant]
     Active Substance: MIRTAZAPINE
  30. MIDODRINE [Concomitant]
     Active Substance: MIDODRINE
  31. TORSEMIDE. [Concomitant]
     Active Substance: TORSEMIDE
  32. POLYETHYLENE GLYCOL [Concomitant]
     Active Substance: POLYETHYLENE GLYCOLS
  33. QUETIAPINE. [Concomitant]
     Active Substance: QUETIAPINE
  34. SENNA                              /00142201/ [Concomitant]
     Active Substance: SENNA LEAF
  35. ACETAMINOPHEN. [Concomitant]
     Active Substance: ACETAMINOPHEN
  36. GUAIFENESIN. [Concomitant]
     Active Substance: GUAIFENESIN
  37. MORPHINE [Concomitant]
     Active Substance: MORPHINE
  38. AMBRISENTAN [Suspect]
     Active Substance: AMBRISENTAN
     Indication: PULMONARY HYPERTENSION
  39. LANTUS [Concomitant]
     Active Substance: INSULIN GLARGINE
  40. MONTELUKAST [Concomitant]
     Active Substance: MONTELUKAST SODIUM
  41. POTASSIUM CHLORIDE. [Concomitant]
     Active Substance: POTASSIUM CHLORIDE
  42. LORATADINE. [Concomitant]
     Active Substance: LORATADINE
  43. HYDROCODONE BITARTRATE AND ACETAMINOPHEN [Concomitant]
     Active Substance: ACETAMINOPHEN\HYDROCODONE BITARTRATE
  44. RANOLAZINE [Concomitant]
     Active Substance: RANOLAZINE
  45. COLCHICIN [Concomitant]
     Active Substance: COLCHICINE
  46. MIRTAZAPINE. [Concomitant]
     Active Substance: MIRTAZAPINE
  47. NYSTATIN. [Concomitant]
     Active Substance: NYSTATIN
  48. DEXTROSE. [Concomitant]
     Active Substance: DEXTROSE

REACTIONS (2)
  - Dyspnoea [Not Recovered/Not Resolved]
  - Off label use [Not Recovered/Not Resolved]

NARRATIVE: CASE EVENT DATE: 20160321
